FAERS Safety Report 21666131 (Version 2)
Quarter: 2023Q1

REPORT INFORMATION
  Report Type: Report from Study
  Country: US (occurrence: US)
  Receive Date: 20221201
  Receipt Date: 20230120
  Transmission Date: 20230418
  Serious: No
  Sender: FDA-Public Use
  Company Number: US-ABBVIE-4211570

PATIENT
  Age: 48 Year
  Sex: Female

DRUGS (1)
  1. HUMIRA [Suspect]
     Active Substance: ADALIMUMAB
     Indication: Colitis ulcerative
     Dosage: CESSATION DATE OF THERAPY WAS 2022; ONSET DATE OF EVENT NOT FEELING WELL WAS 2022
     Route: 058
     Dates: start: 202204

REACTIONS (4)
  - Colitis ulcerative [Recovering/Resolving]
  - Malaise [Unknown]
  - Therapeutic product effect decreased [Not Recovered/Not Resolved]
  - Colitis ulcerative [Unknown]

NARRATIVE: CASE EVENT DATE: 20221101
